FAERS Safety Report 9880783 (Version 1)
Quarter: 2014Q1

REPORT INFORMATION
  Report Type: Spontaneous
  Country: US (occurrence: US)
  Receive Date: 20140207
  Receipt Date: 20140207
  Transmission Date: 20141002
  Serious: No
  Sender: FDA-Public Use
  Company Number: US-PFIZER INC-2014034868

PATIENT
  Age: 39 Year
  Sex: Female

DRUGS (5)
  1. DILANTIN-125 [Suspect]
     Dosage: UNK
  2. GEODON [Suspect]
     Dosage: UNK
  3. RISPERDAL [Suspect]
     Dosage: UNK
  4. LORAMAX [Suspect]
     Dosage: UNK
  5. WELLBUTRIN [Suspect]
     Dosage: UNK

REACTIONS (1)
  - Drug hypersensitivity [Unknown]
